FAERS Safety Report 8085036-4 (Version None)
Quarter: 2012Q1

REPORT INFORMATION
  Report Type: 
  Country: None (occurrence: None)
  Receive Date: 20120128
  Receipt Date: 20110309
  Transmission Date: 20120608
  Serious: No
  Sender: FDA-Public Use
  Company Number: US-ABBOTT-11P-163-0711185-00

PATIENT
  Sex: Male
  Weight: 81.72 kg

DRUGS (4)
  1. SERTRALINE HYDROCHLORIDE [Concomitant]
     Indication: DEPRESSION
  2. HUMIRA [Suspect]
     Indication: PSORIASIS
     Dates: start: 20101118, end: 20110223
  3. LISINOPRIL [Concomitant]
     Indication: HYPERTENSION
  4. CHLORTHALIDONE [Concomitant]
     Indication: HYPERTENSION

REACTIONS (1)
  - VIITH NERVE PARALYSIS [None]
